FAERS Safety Report 19934174 (Version 1)
Quarter: 2021Q4

REPORT INFORMATION
  Report Type: Spontaneous
  Country: CO (occurrence: CO)
  Receive Date: 20211008
  Receipt Date: 20211008
  Transmission Date: 20220303
  Serious: Yes (Other)
  Sender: FDA-Public Use
  Company Number: CO-MLMSERVICE-20210927-3129401-1

PATIENT
  Age: 43 Year
  Sex: Female

DRUGS (1)
  1. MOXIFLOXACIN [Suspect]
     Active Substance: MOXIFLOXACIN
     Indication: Bronchitis
     Dosage: UNK
     Route: 048

REACTIONS (12)
  - Iris atrophy [Unknown]
  - Eye pain [Unknown]
  - Photophobia [Unknown]
  - Eye disorder [Unknown]
  - Pigment dispersion syndrome [Recovered/Resolved]
  - Iris transillumination defect [Recovering/Resolving]
  - Visual acuity reduced [Recovering/Resolving]
  - Mydriasis [Unknown]
  - Pupils unequal [Unknown]
  - Conjunctival hyperaemia [Unknown]
  - Glaucoma [Recovered/Resolved]
  - Vision blurred [Recovering/Resolving]
